FAERS Safety Report 22272200 (Version 1)
Quarter: 2023Q2

REPORT INFORMATION
  Report Type: Spontaneous
  Country: CN (occurrence: CN)
  Receive Date: 20230502
  Receipt Date: 20230502
  Transmission Date: 20230722
  Serious: Yes (Death, Other)
  Sender: FDA-Public Use
  Company Number: CN-AMGEN-CHNSP2023073450

PATIENT

DRUGS (3)
  1. BLINCYTO [Suspect]
     Active Substance: BLINATUMOMAB
     Indication: B precursor type acute leukaemia
     Dosage: 9 MICROGRAM, QD, FOR THE FIRST WEEK
     Route: 042
  2. BLINCYTO [Suspect]
     Active Substance: BLINATUMOMAB
     Dosage: 28 MICROGRAM, QD, FROM THE SECOND WEEK UNTIL THE END OF FOURTH WEEK
     Route: 042
  3. DEXAMETHASONE [Concomitant]
     Active Substance: DEXAMETHASONE
     Indication: Prophylaxis
     Dosage: 20 MILLIGRAM
     Route: 042

REACTIONS (10)
  - Death [Fatal]
  - Cytokine release syndrome [Unknown]
  - Pneumonia [Unknown]
  - Hypoacusis [Unknown]
  - Arthralgia [Unknown]
  - Inappropriate schedule of product administration [Unknown]
  - Product administration interrupted [Unknown]
  - Immunoglobulins decreased [Unknown]
  - Transaminases increased [Unknown]
  - Hepatic enzyme increased [Unknown]
